FAERS Safety Report 8473832-0 (Version None)
Quarter: 2012Q2

REPORT INFORMATION
  Report Type: 
  Country: None (occurrence: None)
  Receive Date: 20120628
  Receipt Date: 20111213
  Transmission Date: 20120825
  Serious: Yes (Death)
  Sender: FDA-Public Use
  Company Number: US-MYLANLABS-2011S1025579

PATIENT
  Age: 56 Year
  Sex: Female

DRUGS (6)
  1. SEROQUEL [Concomitant]
  2. B12-VITAMIIN [Concomitant]
  3. ABILIFY [Concomitant]
  4. CYMBALTA [Concomitant]
  5. CLOZAPINE [Suspect]
     Indication: SCHIZOPHRENIA, PARANOID TYPE
     Route: 048
  6. VICODIN [Concomitant]
     Dosage: 5MG/500MG

REACTIONS (1)
  - DEATH [None]
